FAERS Safety Report 7947921-0 (Version None)
Quarter: 2011Q4

REPORT INFORMATION
  Report Type: 
  Country: None (occurrence: None)
  Receive Date: 20111123
  Receipt Date: 20111115
  Transmission Date: 20120403
  Serious: Yes (Other)
  Sender: FDA-Public Use
  Company Number: 2011P1010219

PATIENT
  Age: 72 Year
  Sex: Female
  Weight: 62.9 kg

DRUGS (24)
  1. SALMETEROL [Concomitant]
  2. VENLAFAXINE [Concomitant]
  3. FLUTICASON [Concomitant]
  4. BUSPIRONE [Concomitant]
  5. METHYLPREDNISOLONE [Concomitant]
  6. DOXYCYCLINE [Concomitant]
  7. EZETIMIBE [Concomitant]
  8. EZETIMIBE [Concomitant]
  9. VANCOMYCIN [Concomitant]
  10. GABAPENTIN [Concomitant]
  11. TIOTROPLUM [Concomitant]
  12. QUETIAPINE [Concomitant]
  13. ACETAMINOPHEN [Concomitant]
  14. PANTOPRAZOLE [Concomitant]
  15. LEVOTHYROXINE SODIUM [Concomitant]
  16. ATORVASTATIN [Concomitant]
  17. MONTELUKAST SODIUM [Concomitant]
  18. INSULIN ASPART [Concomitant]
  19. SODIUM CHLORIDE [Concomitant]
  20. CEFEPIME [Concomitant]
  21. HALOPERIDOL [Concomitant]
  22. HEPARIN SODIUM [Suspect]
     Indication: DEEP VEIN THROMBOSIS
     Dosage: 5000 IU;Q8H;SC
     Route: 058
     Dates: start: 20111109
  23. ALBUTEROL [Concomitant]
  24. DOCUSATE [Concomitant]

REACTIONS (4)
  - PUPILLARY REFLEX IMPAIRED [None]
  - RESPIRATORY DISTRESS [None]
  - UNRESPONSIVE TO STIMULI [None]
  - ASTHMA [None]
